FAERS Safety Report 13016761 (Version 2)
Quarter: 2016Q4

REPORT INFORMATION
  Report Type: Spontaneous
  Country: US (occurrence: US)
  Receive Date: 20161212
  Receipt Date: 20161214
  Transmission Date: 20170207
  Serious: No
  Sender: FDA-Public Use
  Company Number: US-AMGEN-USASP2016172482

PATIENT
  Age: 52 Year
  Sex: Female

DRUGS (4)
  1. ENBREL [Suspect]
     Active Substance: ETANERCEPT
     Indication: ANKYLOSING SPONDYLITIS
  2. ENBREL [Suspect]
     Active Substance: ETANERCEPT
     Indication: COLITIS
     Dosage: 50 MG, QWK
     Route: 058
     Dates: start: 201602, end: 20161128
  3. ENBREL [Suspect]
     Active Substance: ETANERCEPT
     Indication: RHEUMATOID ARTHRITIS
  4. ENBREL [Suspect]
     Active Substance: ETANERCEPT
     Indication: CROHN^S DISEASE

REACTIONS (8)
  - Peripheral swelling [Unknown]
  - Local swelling [Unknown]
  - Abdominal distension [Unknown]
  - Off label use [Unknown]
  - Pain in extremity [Unknown]
  - Tendon disorder [Unknown]
  - Drug effect decreased [Unknown]
  - Neck pain [Unknown]

NARRATIVE: CASE EVENT DATE: 2016
